FAERS Safety Report 10534220 (Version 3)
Quarter: 2016Q1

REPORT INFORMATION
  Report Type: Report from Study
  Country: NZ (occurrence: NZ)
  Receive Date: 20141022
  Receipt Date: 20160115
  Transmission Date: 20160525
  Serious: Yes (Hospitalization)
  Sender: FDA-Public Use
  Company Number: NZ-ABBVIE-13P-118-1115800-00

PATIENT
  Age: 26 Year
  Sex: Female

DRUGS (6)
  1. MICROGYNON [Concomitant]
     Active Substance: ETHINYL ESTRADIOL\LEVONORGESTREL ACETATE
     Indication: CONTRACEPTION
     Dates: start: 2000
  2. HUMIRA [Suspect]
     Active Substance: ADALIMUMAB
     Indication: CROHN^S DISEASE
     Route: 058
     Dates: start: 20090622, end: 20090622
  3. CITALOPRAM [Concomitant]
     Active Substance: CITALOPRAM HYDROBROMIDE
     Indication: DEPRESSION
     Dates: start: 200412
  4. HUMIRA [Suspect]
     Active Substance: ADALIMUMAB
     Route: 058
     Dates: start: 200906, end: 200906
  5. HUMIRA [Suspect]
     Active Substance: ADALIMUMAB
     Route: 058
     Dates: start: 200907, end: 20090914
  6. CODEINE PHOSPHATE [Concomitant]
     Active Substance: CODEINE PHOSPHATE
     Indication: PAIN
     Dates: start: 2004

REACTIONS (4)
  - Gastrointestinal stoma complication [Unknown]
  - Fistula discharge [Unknown]
  - Anal abscess [Unknown]
  - Anal fistula [Unknown]

NARRATIVE: CASE EVENT DATE: 201006
